FAERS Safety Report 25307327 (Version 1)
Quarter: 2025Q2

REPORT INFORMATION
  Report Type: Spontaneous
  Country: TR (occurrence: None)
  Receive Date: 20250513
  Receipt Date: 20250513
  Transmission Date: 20250716
  Serious: Yes (Hospitalization, Other)
  Sender: INCYTE
  Company Number: TR-002147023-NVSC2025TR075685

PATIENT
  Age: 31 Year

DRUGS (1)
  1. RUXOLITINIB [Suspect]
     Active Substance: RUXOLITINIB
     Indication: Bone cancer
     Route: 065

REACTIONS (2)
  - Infection [Unknown]
  - Off label use [Unknown]
